FAERS Safety Report 6239577-2 (Version None)
Quarter: 2009Q2

REPORT INFORMATION
  Report Type: 
  Country: None (occurrence: None)
  Receive Date: 20090622
  Receipt Date: 20090611
  Transmission Date: 20091009
  Serious: Yes (Other)
  Sender: FDA-Public Use
  Company Number: CA-JNJCH-2009008796

PATIENT
  Sex: Female

DRUGS (5)
  1. VISINE EYE DROPS [Suspect]
     Indication: EYE PAIN
     Dosage: TEXT:ONE DROP IN EACH EYE TWICE A DAY
     Route: 047
     Dates: start: 20090221, end: 20090307
  2. DOVOBET [Concomitant]
     Indication: PSORIASIS
     Dosage: TEXT:UNSPECIFIED
     Route: 065
  3. PREVEX ^TRANS-CANADA DERMAPEUTICS^ [Concomitant]
     Indication: PSORIASIS
     Dosage: TEXT:UNSPECIFIED
     Route: 065
  4. ELOCON [Concomitant]
     Indication: PSORIASIS
     Dosage: TEXT:UNSPECIFIED
     Route: 065
  5. ATIVAN [Concomitant]
     Indication: NERVOUSNESS
     Dosage: TEXT:UNSPECIFIED
     Route: 065
     Dates: start: 20081101

REACTIONS (4)
  - BURNING SENSATION [None]
  - EYE PAIN [None]
  - OCULAR HYPERAEMIA [None]
  - PRODUCT CONTAMINATION [None]
